FAERS Safety Report 5703975-3 (Version None)
Quarter: 2008Q2

REPORT INFORMATION
  Report Type: 
  Country: None (occurrence: None)
  Receive Date: 20080409
  Receipt Date: 20080325
  Transmission Date: 20081010
  Serious: Yes (Other)
  Sender: FDA-Public Use
  Company Number: B0515082A

PATIENT
  Age: 13 Year
  Sex: Male

DRUGS (2)
  1. MELPHALAN (FORMULATION UNKNOWN) (MELPHALAN) (GENERIC) [Suspect]
     Indication: BONE MARROW TRANSPLANT
  2. BUSULFAN (FORMULATION UNKNWN) (BUSULFAN) (GENERIC) [Suspect]
     Indication: BONE MARROW TRANSPLANT

REACTIONS (6)
  - CRYPTOGENIC ORGANISING PNEUMONIA [None]
  - DIFFUSE ALVEOLAR DAMAGE [None]
  - DRUG TOXICITY [None]
  - EWING'S SARCOMA RECURRENT [None]
  - LUNG INJURY [None]
  - STEM CELL TRANSPLANT [None]
